FAERS Safety Report 8847276 (Version 2)
Quarter: 2012Q4

REPORT INFORMATION
  Report Type: 
  Country: US (occurrence: US)
  Receive Date: 20121018
  Receipt Date: 20121116
  Transmission Date: 20130627
  Serious: Yes (Other)
  Sender: FDA-Public Use
  Company Number: US-PFIZER INC-2012259172

PATIENT
  Age: 66 Year
  Sex: Female

DRUGS (3)
  1. LYRICA [Suspect]
     Indication: PAIN
     Dosage: 50 mg, 2x/day
     Dates: start: 20120928
  2. LYRICA [Suspect]
     Indication: NERVOUS SYSTEM DISORDER
  3. WARFARIN [Concomitant]
     Indication: ANTICOAGULANT THERAPY
     Dosage: 1 tablet of 5mg daily for 1st 5 days in a week followed by half tablet of 5mg daily for next 2 days
     Route: 048

REACTIONS (3)
  - Swelling face [Not Recovered/Not Resolved]
  - Mastication disorder [Not Recovered/Not Resolved]
  - Pain in jaw [Not Recovered/Not Resolved]
